FAERS Safety Report 9030300 (Version 1)
Quarter: 2013Q1

REPORT INFORMATION
  Report Type: Spontaneous
  Country: US (occurrence: US)
  Receive Date: 20130122
  Receipt Date: 20130122
  Transmission Date: 20140127
  Serious: Yes (Hospitalization, Other)
  Sender: FDA-Public Use
  Company Number: US-PFIZER INC-2013021500

PATIENT
  Age: 62 Year
  Sex: Male
  Weight: 108.4 kg

DRUGS (10)
  1. TIKOSYN [Suspect]
     Indication: ATRIAL FIBRILLATION
     Dosage: 500 UG, 2X/DAY
     Route: 048
  2. LIPITOR [Suspect]
     Indication: BLOOD CHOLESTEROL INCREASED
     Dosage: 80 MG, 1X/DAY
     Route: 048
     Dates: end: 201301
  3. OS-CAL D [Concomitant]
     Dosage: UNK
  4. ZYLOPRIM [Concomitant]
     Dosage: 300 MG, UNK
  5. NORCO [Concomitant]
     Dosage: 5/325 MG, UNK
  6. SLO-MAG [Concomitant]
     Dosage: 64 MG, UNK
  7. BYSTOLIC [Concomitant]
     Dosage: 5 MG, UNK
  8. FLOMAX [Concomitant]
     Dosage: 0.4 MG, UNK
  9. DIOVAN [Concomitant]
     Dosage: 40 MG, UNK
  10. WARFARIN [Concomitant]
     Dosage: 7.5 MG, UNK

REACTIONS (6)
  - Abdominal pain [Unknown]
  - Ileus [Unknown]
  - Cholelithiasis [Unknown]
  - Aspartate aminotransferase increased [Not Recovered/Not Resolved]
  - Alanine aminotransferase increased [Not Recovered/Not Resolved]
  - Haemoglobin decreased [Not Recovered/Not Resolved]
